FAERS Safety Report 16819507 (Version 1)
Quarter: 2019Q3

REPORT INFORMATION
  Report Type: Spontaneous
  Country: US (occurrence: US)
  Receive Date: 20190917
  Receipt Date: 20190917
  Transmission Date: 20191005
  Serious: Yes (Hospitalization, Other)
  Sender: FDA-Public Use
  Company Number: US-TEVA-2019-US-1109413

PATIENT
  Sex: Male
  Weight: 80 kg

DRUGS (6)
  1. TACROLIMUS. [Suspect]
     Active Substance: TACROLIMUS
     Dosage: IN THE MORNING
     Route: 048
  2. TACROLIMUS. [Suspect]
     Active Substance: TACROLIMUS
     Route: 048
  3. NIVOLUMAB [Suspect]
     Active Substance: NIVOLUMAB
     Indication: NEUROENDOCRINE TUMOUR OF THE LUNG METASTATIC
     Dosage: 4 DOSES IN TOTAL
     Route: 050
     Dates: start: 201511
  4. DOCETAXEL. [Suspect]
     Active Substance: DOCETAXEL
     Indication: NEUROENDOCRINE TUMOUR OF THE LUNG METASTATIC
     Dosage: THIRD-LINE THERAPY; PATIENT RECEIVED 20 CYCLES
     Route: 065
     Dates: start: 201405
  5. TACROLIMUS. [Suspect]
     Active Substance: TACROLIMUS
     Dosage: IN THE EVENING
     Route: 048
  6. TACROLIMUS. [Suspect]
     Active Substance: TACROLIMUS
     Route: 048
     Dates: start: 201612

REACTIONS (10)
  - Neuropathy peripheral [Unknown]
  - General physical health deterioration [Unknown]
  - Off label use [Unknown]
  - Nephropathy toxic [Unknown]
  - Pruritus [Recovering/Resolving]
  - Rash [Recovering/Resolving]
  - Dysphagia [Unknown]
  - Stomatitis [Recovering/Resolving]
  - Fatigue [Recovered/Resolved]
  - Eating disorder [Unknown]

NARRATIVE: CASE EVENT DATE: 2016
